FAERS Safety Report 20065845 (Version 1)
Quarter: 2021Q4

REPORT INFORMATION
  Report Type: Spontaneous
  Country: BR (occurrence: BR)
  Receive Date: 20211114
  Receipt Date: 20211114
  Transmission Date: 20220304
  Serious: Yes (Other)
  Sender: FDA-Public Use
  Company Number: None

PATIENT
  Age: 58 Year
  Sex: Female
  Weight: 80 kg

DRUGS (10)
  1. LOSARTAN POTASSIUM [Suspect]
     Active Substance: LOSARTAN POTASSIUM
     Indication: Hypertension
     Dosage: 50 MILLIGRAM, QD (ONE DAY)
     Route: 048
     Dates: start: 2018
  2. FLUNARIZINE HYDROCHLORIDE [Suspect]
     Active Substance: FLUNARIZINE HYDROCHLORIDE
     Indication: Dizziness
     Dosage: 10 MILLIGRAM, QD (1 DAY)
     Route: 048
     Dates: start: 20200923, end: 20201102
  3. FLUNARIZINE HYDROCHLORIDE [Suspect]
     Active Substance: FLUNARIZINE HYDROCHLORIDE
     Indication: Tinnitus
  4. FLUNARIZINE HYDROCHLORIDE [Suspect]
     Active Substance: FLUNARIZINE HYDROCHLORIDE
     Indication: Balance disorder
  5. DIPIRONA [METAMIZOLE MAGNESIUM] [Concomitant]
     Indication: Headache
     Dosage: UNK (USE WHEN NECESSARY (SPORADIC USE)
  6. CLONAZEPAM [Concomitant]
     Active Substance: CLONAZEPAM
     Indication: Anxiety
     Dosage: UNK (NOT INFORMED)
     Route: 048
     Dates: start: 2017, end: 2020
  7. CAPTOPRIL [Concomitant]
     Active Substance: CAPTOPRIL
     Indication: Hypertension
     Dosage: ONE 50 MG TABLET A DAY WHEN NEEDED
     Route: 060
     Dates: start: 2018
  8. FLUXON [Concomitant]
     Indication: Dizziness
     Dosage: 75 MILLIGRAM, QD (1 DAY)
     Route: 048
     Dates: start: 2020, end: 20210204
  9. FLUXON [Concomitant]
     Indication: Balance disorder
     Dosage: HALF A 75MG TABLET TWICE A DAY WHEN NEEDED
     Route: 048
     Dates: start: 2019, end: 2020
  10. FLUXON [Concomitant]
     Indication: Tinnitus

REACTIONS (8)
  - Tinnitus [Recovered/Resolved]
  - Balance disorder [Recovered/Resolved]
  - Dizziness [Recovered/Resolved]
  - Headache [Recovered/Resolved]
  - Syncope [Recovered/Resolved]
  - Drug ineffective [Not Recovered/Not Resolved]
  - Somnolence [Recovered/Resolved]
  - Drug ineffective [Recovered/Resolved]

NARRATIVE: CASE EVENT DATE: 20200101
